FAERS Safety Report 18462211 (Version 1)
Quarter: 2020Q4

REPORT INFORMATION
  Report Type: Spontaneous
  Country: IN (occurrence: IN)
  Receive Date: 20201104
  Receipt Date: 20201104
  Transmission Date: 20210114
  Serious: Yes (Other)
  Sender: FDA-Public Use
  Company Number: IN-PFIZER INC-2020420399

PATIENT

DRUGS (3)
  1. AMLODIPINE BESILATE [Suspect]
     Active Substance: AMLODIPINE BESYLATE
     Dosage: 5 MG (30 TABLETS)
     Route: 048
     Dates: start: 20190305
  2. ATENOLOL. [Suspect]
     Active Substance: ATENOLOL
     Dosage: 50 MG (ALONG WITH ETHANOL)
     Route: 048
     Dates: start: 20190305
  3. ATENOLOL. [Suspect]
     Active Substance: ATENOLOL
     Dosage: 150 MG

REACTIONS (2)
  - Toxicity to various agents [Unknown]
  - Overdose [Unknown]

NARRATIVE: CASE EVENT DATE: 20190305
